FAERS Safety Report 24366263 (Version 5)
Quarter: 2025Q2

REPORT INFORMATION
  Report Type: Spontaneous
  Country: CA (occurrence: CA)
  Receive Date: 20240926
  Receipt Date: 20250407
  Transmission Date: 20250717
  Serious: Yes (Other)
  Sender: PFIZER
  Company Number: CA-PFIZER INC-202400207838

PATIENT
  Age: 53 Year
  Sex: Male

DRUGS (5)
  1. VELSIPITY [Suspect]
     Active Substance: ETRASIMOD ARGININE
     Indication: Colitis ulcerative
     Dosage: 2 MG, 1X/DAY
     Route: 048
     Dates: start: 20240726, end: 2024
  2. VELSIPITY [Suspect]
     Active Substance: ETRASIMOD ARGININE
     Dosage: 2 MG, 1X/DAY, DISCONTINUED
     Route: 048
     Dates: start: 20240816, end: 2025
  3. VELSIPITY [Suspect]
     Active Substance: ETRASIMOD ARGININE
     Dosage: 2 MG, 1X/DAY
     Route: 048
     Dates: start: 20250117, end: 20250118
  4. MESALAMINE [Concomitant]
     Active Substance: MESALAMINE
  5. XELJANZ [Concomitant]
     Active Substance: TOFACITINIB CITRATE
     Indication: Colitis ulcerative
     Dosage: 10 MG BID FOR 16 WEEKS THEN 5 MG BID (1DF)
     Route: 048
     Dates: start: 20231202, end: 2024

REACTIONS (3)
  - Anaemia [Unknown]
  - Drug ineffective [Unknown]
  - Condition aggravated [Not Recovered/Not Resolved]

NARRATIVE: CASE EVENT DATE: 20240101
